FAERS Safety Report 21390362 (Version 2)
Quarter: 2022Q4

REPORT INFORMATION
  Report Type: Spontaneous
  Country: FR (occurrence: FR)
  Receive Date: 20220929
  Receipt Date: 20221221
  Transmission Date: 20230113
  Serious: Yes (Hospitalization)
  Sender: FDA-Public Use
  Company Number: None

PATIENT
  Age: 17 Year
  Sex: Female
  Weight: 43 kg

DRUGS (3)
  1. ADAKVEO [Suspect]
     Active Substance: CRIZANLIZUMAB-TMCA
     Indication: Sickle cell anaemia with crisis
     Dosage: 200 MG
     Route: 065
     Dates: start: 20220719
  2. ADAKVEO [Suspect]
     Active Substance: CRIZANLIZUMAB-TMCA
     Indication: Sickle cell disease
     Dosage: 72 MG, TOTAL (AROUND 10/15 MINUTES AFTER THE BEGINNING OF THE SECOND 200 MG ADMINISTRATION (36 ML ?
     Route: 042
     Dates: start: 20220901
  3. HYDROXYZINE [Concomitant]
     Active Substance: HYDROXYZINE HYDROCHLORIDE
     Indication: Product used for unknown indication
     Dosage: UNK
     Route: 065

REACTIONS (18)
  - Renal tubular disorder [Recovering/Resolving]
  - Thrombocytopenia [Unknown]
  - Haemophagocytic lymphohistiocytosis [Unknown]
  - Chronic inflammatory response syndrome [Unknown]
  - Hyperleukocytosis [Unknown]
  - Hyperferritinaemia [Unknown]
  - Tachycardia [Unknown]
  - Hyponatraemia [Unknown]
  - Hypomagnesaemia [Unknown]
  - Hypophosphataemia [Unknown]
  - Pyrexia [Unknown]
  - Vomiting [Unknown]
  - Anaemia [Unknown]
  - Reticulocytopenia [Unknown]
  - Sickle cell anaemia with crisis [Recovered/Resolved]
  - Pain [Unknown]
  - Pain in extremity [Unknown]
  - Back pain [Unknown]

NARRATIVE: CASE EVENT DATE: 20220901
